FAERS Safety Report 7972707-0 (Version None)
Quarter: 2011Q4

REPORT INFORMATION
  Report Type: 
  Country: None (occurrence: None)
  Receive Date: 20111213
  Receipt Date: 20111202
  Transmission Date: 20120403
  Serious: Yes (Other)
  Sender: FDA-Public Use
  Company Number: ES-ROCHE-1020454

PATIENT
  Age: 30 Year
  Sex: Female

DRUGS (5)
  1. FLUTICASONE PROPIONATE [Concomitant]
  2. EBASTINE [Concomitant]
  3. XOLAIR [Suspect]
     Indication: ASTHMA
     Route: 058
     Dates: start: 20090121
  4. FORMOTEROL FUMARATE [Concomitant]
  5. MONTELUKAST SODIUM [Concomitant]

REACTIONS (1)
  - VITILIGO [None]
